FAERS Safety Report 4448249-6 (Version None)
Quarter: 2004Q3

REPORT INFORMATION
  Report Type: 
  Country: None (occurrence: None)
  Receive Date: 20040910
  Receipt Date: 20040729
  Transmission Date: 20050211
  Serious: Yes (Other)
  Sender: FDA-Public Use
  Company Number: 600933

PATIENT
  Age: 77 Year
  Sex: Male

DRUGS (9)
  1. PROTENATE [Suspect]
     Indication: VOLUME BLOOD INCREASED
     Dosage: 500 ML ; INTRAVENOUS
     Route: 042
     Dates: start: 20030707, end: 20030707
  2. TISSUCOL/TISSEEL KIT STIM3 (2-COMP FIBRIN SEALANT, FREEZE-DRIED,VAPOR [Suspect]
     Indication: CORONARY ARTERY SURGERY
     Dosage: 5 ML
     Dates: start: 20030707, end: 20030707
  3. TACHOCOMB (COLLAGEN) [Suspect]
     Dosage: TOPICAL
     Route: 061
     Dates: start: 20030707, end: 20030707
  4. ISOSORBIDE DINITRATE [Concomitant]
  5. GASTER [Concomitant]
  6. LASIX [Concomitant]
  7. HALCION [Concomitant]
  8. 8-HOUR BAYER [Concomitant]
  9. DILTIAZEM [Concomitant]

REACTIONS (1)
  - HEPATITIS C ANTIBODY POSITIVE [None]
